FAERS Safety Report 20204271 (Version 1)
Quarter: 2021Q4

REPORT INFORMATION
  Report Type: Spontaneous
  Country: US (occurrence: US)
  Receive Date: 20211220
  Receipt Date: 20211220
  Transmission Date: 20220304
  Serious: Yes (Hospitalization)
  Sender: FDA-Public Use
  Company Number: US-CIPLA LTD.-2021US08102

PATIENT

DRUGS (7)
  1. AMLODIPINE [Suspect]
     Active Substance: AMLODIPINE BESYLATE
     Indication: Hypertension
     Dosage: 0.5 MILLIGRAM/KILOGRAM, DAILY
     Route: 048
  2. HYDRALAZINE [Suspect]
     Active Substance: HYDRALAZINE HYDROCHLORIDE
     Indication: Hypertension
     Dosage: 0.1 MILLIGRAM/KILOGRAM, UNK
     Route: 048
  3. METHYLPREDNISOLONE ACETATE [Suspect]
     Active Substance: METHYLPREDNISOLONE ACETATE
     Indication: Takayasu^s arteritis
     Dosage: 3 GRAM, UNK
     Route: 042
  4. LABETALOL [Suspect]
     Active Substance: LABETALOL\LABETALOL HYDROCHLORIDE
     Indication: Hypertension
     Dosage: 1 MILLIGRAM/KILOGRAM, UNK
     Route: 048
  5. INFLIXIMAB [Concomitant]
     Active Substance: INFLIXIMAB
     Indication: Takayasu^s arteritis
     Dosage: 10 MILLIGRAM/KILOGRAM, UNK
     Route: 065
  6. INFLIXIMAB [Concomitant]
     Active Substance: INFLIXIMAB
     Dosage: 10 MILLIGRAM/KILOGRAM, BI-WEEKLY
  7. HYDRALAZINE [Concomitant]
     Active Substance: HYDRALAZINE HYDROCHLORIDE
     Indication: Hypertension
     Dosage: UNK
     Route: 042

REACTIONS (2)
  - Therapy non-responder [Unknown]
  - Fluid retention [Unknown]
